FAERS Safety Report 8027931-8 (Version None)
Quarter: 2012Q1

REPORT INFORMATION
  Report Type: 
  Country: None (occurrence: None)
  Receive Date: 20120106
  Receipt Date: 20111229
  Transmission Date: 20120608
  Serious: No
  Sender: FDA-Public Use
  Company Number: US-B.I. PHARMACEUTICALS,INC./RIDGEFIELD-2011-BP-22163BP

PATIENT
  Sex: Male
  Weight: 113.4 kg

DRUGS (14)
  1. DIAZEPAM [Concomitant]
     Indication: DEPRESSION
     Dosage: 20 MG
     Route: 048
  2. NICOTINE [Concomitant]
     Indication: SMOKING CESSATION THERAPY
     Route: 048
  3. HYDROCODONE 5/ACETAMINOPHEN [Concomitant]
     Indication: DIURETIC THERAPY
     Dosage: 2 TABLETS 3X PER DAY AS NEEDED
     Route: 048
  4. ATENOLOL [Concomitant]
     Indication: BLOOD PRESSURE
     Dosage: 25 MG
     Route: 048
  5. FUROSEMIDE [Concomitant]
     Indication: DIURETIC THERAPY
     Dosage: 20 MG
     Route: 048
  6. ASPIRIN [Concomitant]
     Indication: ANTICOAGULANT THERAPY
     Dosage: 81 MG
     Route: 048
  7. DOXEPIN HYDROCHLORIDE [Concomitant]
     Dosage: 5% CREAM APPLIED TO AFFECTED AREA AS NEEDED
     Route: 061
  8. KETOCONAZOLE [Concomitant]
     Dosage: 2% CREAM APPLIED TO AFFECTED AREA AS NEEDED
     Route: 061
  9. MIRAPEX [Suspect]
     Indication: RESTLESS LEGS SYNDROME
     Dosage: 3 MG
     Route: 048
     Dates: start: 19970101
  10. HCTZ25/TRIAMTERENE [Concomitant]
     Dosage: 25MG/37.5 MG HALF A TABLET DAILY
     Route: 048
  11. VARDENAFIL HYDROCHLORIDE (LEVITRA) [Concomitant]
     Indication: ERECTILE DYSFUNCTION
     Dosage: 20 MG
     Route: 048
  12. CITALOPRAM HYDROBROMIDE [Concomitant]
     Indication: DEPRESSION
     Dosage: 20 MG
     Route: 048
  13. MORPHINE [Concomitant]
     Indication: DIURETIC THERAPY
     Dosage: 30 MG
     Route: 048
  14. SENNA-MINT WAF [Concomitant]
     Indication: CONSTIPATION
     Dosage: 17.2 MG
     Route: 048

REACTIONS (5)
  - STRESS [None]
  - SOMNOLENCE [None]
  - SUICIDAL IDEATION [None]
  - PATHOLOGICAL GAMBLING [None]
  - OBSESSIVE-COMPULSIVE DISORDER [None]
